FAERS Safety Report 16941944 (Version 2)
Quarter: 2019Q4

REPORT INFORMATION
  Report Type: Spontaneous
  Country: US (occurrence: US)
  Receive Date: 20191021
  Receipt Date: 20191022
  Transmission Date: 20200122
  Serious: Yes (Hospitalization, Other)
  Sender: FDA-Public Use
  Company Number: US-SHIRE-US201934829

PATIENT
  Sex: Female

DRUGS (1)
  1. NATPARA (PARATHYROID HORMONE) [Suspect]
     Active Substance: PARATHYROID HORMONE
     Indication: THYROID CANCER
     Dosage: 75 MICROGRAM
     Route: 065
     Dates: start: 20160531, end: 20190910

REACTIONS (7)
  - Recalled product [Unknown]
  - Cough [Unknown]
  - Blood calcium decreased [Not Recovered/Not Resolved]
  - Seizure [Unknown]
  - Cardiac disorder [Unknown]
  - Blood calcium increased [Unknown]
  - Blood magnesium abnormal [Unknown]
